FAERS Safety Report 16447082 (Version 1)
Quarter: 2019Q2

REPORT INFORMATION
  Report Type: Spontaneous
  Country: US (occurrence: US)
  Receive Date: 20190618
  Receipt Date: 20190618
  Transmission Date: 20190711
  Serious: No
  Sender: FDA-Public Use
  Company Number: US-TEVA-2019-US-1058920

PATIENT
  Age: 44 Year
  Sex: Male

DRUGS (1)
  1. TENOFOVIR TEVA [Suspect]
     Active Substance: TENOFOVIR
     Indication: HEPATITIS B
     Route: 048
     Dates: start: 20180101

REACTIONS (2)
  - Stomatitis [Unknown]
  - Ulcer [Unknown]

NARRATIVE: CASE EVENT DATE: 20181224
